FAERS Safety Report 4405938-7 (Version None)
Quarter: 2004Q3

REPORT INFORMATION
  Report Type: 
  Country: None (occurrence: None)
  Receive Date: 20040723
  Receipt Date: 20040211
  Transmission Date: 20050211
  Serious: Yes (Hospitalization)
  Sender: FDA-Public Use
  Company Number: US-GLAXOSMITHKLINE-A0497818A

PATIENT
  Age: 65 Year
  Sex: Female

DRUGS (5)
  1. AVANDIA [Suspect]
     Dosage: 8MG PER DAY
     Route: 048
  2. BETOPTIC S [Concomitant]
  3. SYNTHROID [Concomitant]
  4. ELIDEL [Concomitant]
  5. ASPIRIN [Concomitant]

REACTIONS (2)
  - HYPOGLYCAEMIA [None]
  - WEIGHT INCREASED [None]
